FAERS Safety Report 9125068 (Version 1)
Quarter: 2013Q1

REPORT INFORMATION
  Report Type: Spontaneous
  Country: US (occurrence: US)
  Receive Date: 20130227
  Receipt Date: 20130227
  Transmission Date: 20140127
  Serious: No
  Sender: FDA-Public Use
  Company Number: US-009507513-1302USA009705

PATIENT
  Age: 52 None
  Sex: Male
  Weight: 136.96 kg

DRUGS (14)
  1. LISINOPRIL [Suspect]
     Dosage: 20 MG, UNK
     Route: 048
  2. PODOFILOX [Interacting]
     Indication: PRURITUS GENITAL
     Dosage: A LOT  TWICE,
     Route: 061
     Dates: start: 20121116, end: 20121116
  3. METFORMIN [Interacting]
     Dosage: 1000 MG, BID
     Route: 048
  4. IBUPROFEN [Interacting]
     Dosage: 800 MG, BID
     Route: 048
  5. OMEGA-3 MARINE TRIGLYCERIDES [Interacting]
     Dosage: 1000 MG, BID
     Route: 048
  6. CILOSTAZOL [Interacting]
     Dosage: 100 MG, UNK
     Route: 048
  7. ATORVASTATIN [Interacting]
     Dosage: 40 MG, UNK
  8. CARVEDILOL [Interacting]
     Dosage: 25 MG, BID
  9. FENOFIBRATE [Interacting]
     Dosage: 160 MG, UNK
  10. HYDROCHLOROTHIAZIDE [Interacting]
     Dosage: 25 MG, UNK
     Route: 048
  11. LANTUS [Interacting]
     Dosage: 25 UNITS, QD
  12. HUMALOG [Interacting]
     Dosage: 10 MG, QD
  13. ASPIRIN [Interacting]
     Dosage: 81 MG, QD
  14. RANITIDINE [Interacting]
     Dosage: 150 MG, UNK
     Route: 048

REACTIONS (7)
  - Burning sensation [Not Recovered/Not Resolved]
  - Tremor [Recovering/Resolving]
  - Hypersensitivity [Unknown]
  - Drug interaction [Unknown]
  - Pruritus [Unknown]
  - Pruritus [Recovered/Resolved]
  - Burning sensation [Recovered/Resolved]
